FAERS Safety Report 5739467-5 (Version None)
Quarter: 2008Q2

REPORT INFORMATION
  Report Type: 
  Country: None (occurrence: None)
  Receive Date: 20080515
  Receipt Date: 20080507
  Transmission Date: 20081010
  Serious: Yes (Hospitalization, Other)
  Sender: FDA-Public Use
  Company Number: US-ASTRAZENECA-2008UW09383

PATIENT
  Age: 79 Year
  Sex: Female
  Weight: 64 kg

DRUGS (1)
  1. CRESTOR [Suspect]
     Indication: BLOOD CHOLESTEROL INCREASED
     Route: 048
     Dates: start: 20070101, end: 20070501

REACTIONS (9)
  - ABDOMINAL PAIN UPPER [None]
  - BLOOD CHOLESTEROL INCREASED [None]
  - GAIT DISTURBANCE [None]
  - GALLBLADDER OPERATION [None]
  - LOW DENSITY LIPOPROTEIN INCREASED [None]
  - MUSCLE SPASMS [None]
  - NECK PAIN [None]
  - PAIN IN EXTREMITY [None]
  - POLYMYALGIA RHEUMATICA [None]
